FAERS Safety Report 11069296 (Version 1)
Quarter: 2015Q2

REPORT INFORMATION
  Report Type: Spontaneous
  Country: US (occurrence: US)
  Receive Date: 20150427
  Receipt Date: 20150427
  Transmission Date: 20150821
  Serious: Yes (Other)
  Sender: FDA-Public Use
  Company Number: US-CIPLA LTD.-2015US03366

PATIENT

DRUGS (18)
  1. ESCITALOPRAM [Suspect]
     Active Substance: ESCITALOPRAM OXALATE
     Dosage: 10 MG
     Dates: start: 20131028
  2. CITALOPRAM [Suspect]
     Active Substance: CITALOPRAM HYDROBROMIDE
     Dosage: 10 MG
     Dates: start: 201204
  3. RISPERIDONE. [Suspect]
     Active Substance: RISPERIDONE
     Dosage: 0.5 MG
  4. ATOMOXETINE [Suspect]
     Active Substance: ATOMOXETINE
     Dosage: 18 MG
  5. TESTOSTERONE CYPIONATE. [Suspect]
     Active Substance: TESTOSTERONE CYPIONATE
     Dosage: 200 MG/ML
  6. LAMOTRIGINE. [Suspect]
     Active Substance: LAMOTRIGINE
     Dosage: 175 MG
  7. ARIPIPRAZOLE. [Suspect]
     Active Substance: ARIPIPRAZOLE
     Dosage: 5-10 MG
  8. CITALOPRAM [Suspect]
     Active Substance: CITALOPRAM HYDROBROMIDE
     Dosage: 7.5 MG
  9. FLUVOXAMINE [Suspect]
     Active Substance: FLUVOXAMINE
     Dosage: 75 MG
  10. DEXAMFETAMINE [Suspect]
     Active Substance: DEXTROAMPHETAMINE
     Dosage: 30-60 MG
  11. ESCITALOPRAM [Suspect]
     Active Substance: ESCITALOPRAM OXALATE
     Dosage: 20 MG
  12. CITALOPRAM [Suspect]
     Active Substance: CITALOPRAM HYDROBROMIDE
     Dosage: 15 MG
  13. ARIPIPRAZOLE. [Suspect]
     Active Substance: ARIPIPRAZOLE
     Dosage: 2 MG
  14. CITALOPRAM [Suspect]
     Active Substance: CITALOPRAM HYDROBROMIDE
     Dosage: 10 MG
  15. ARIPIPRAZOLE. [Suspect]
     Active Substance: ARIPIPRAZOLE
     Dosage: 1 MG
     Dates: start: 201304
  16. DEXTROAMPHETAMINE [Suspect]
     Active Substance: DEXTROAMPHETAMINE
     Dosage: 15 MG
  17. ESCITALOPRAM [Suspect]
     Active Substance: ESCITALOPRAM OXALATE
     Dosage: 5 MG
     Dates: start: 20130930
  18. OXCARBAZEPINE. [Suspect]
     Active Substance: OXCARBAZEPINE
     Dosage: TOTAL 375 MG

REACTIONS (19)
  - Activities of daily living impaired [Recovering/Resolving]
  - Aggression [Recovering/Resolving]
  - Blood testosterone decreased [Unknown]
  - Psychomotor hyperactivity [Unknown]
  - Sensory disturbance [Unknown]
  - Stress [Recovering/Resolving]
  - Anxiety [Recovering/Resolving]
  - Sinusitis [Unknown]
  - Anger [Recovering/Resolving]
  - Nail picking [Unknown]
  - Formication [Unknown]
  - Depressive symptom [Recovering/Resolving]
  - Drug ineffective [Unknown]
  - Irritability [Unknown]
  - Panic attack [Recovering/Resolving]
  - Bone development abnormal [Unknown]
  - Insomnia [Recovering/Resolving]
  - Disturbance in attention [Unknown]
  - Decreased appetite [Recovering/Resolving]
